FAERS Safety Report 22351117 (Version 5)
Quarter: 2023Q4

REPORT INFORMATION
  Report Type: Spontaneous
  Country: US (occurrence: US)
  Receive Date: 20230522
  Receipt Date: 20231017
  Transmission Date: 20240110
  Serious: Yes (Hospitalization, Other)
  Sender: FDA-Public Use
  Company Number: US-Stemline Therapeutics, Inc.-2023ST000171

PATIENT
  Age: 61 Year
  Sex: Female

DRUGS (2)
  1. ORSERDU [Suspect]
     Active Substance: ELACESTRANT
     Indication: Product used for unknown indication
     Route: 048
     Dates: start: 20230215, end: 20230523
  2. ORSERDU [Suspect]
     Active Substance: ELACESTRANT
     Route: 048
     Dates: start: 20230710

REACTIONS (28)
  - Tumour lysis syndrome [Not Recovered/Not Resolved]
  - Sepsis [Unknown]
  - Endocarditis [Unknown]
  - Disease progression [Unknown]
  - Heart rate irregular [Unknown]
  - Sleep disorder [Not Recovered/Not Resolved]
  - Tenderness [Not Recovered/Not Resolved]
  - Weight increased [Unknown]
  - Premenstrual syndrome [Recovering/Resolving]
  - Anger [Recovering/Resolving]
  - Uterine spasm [Recovering/Resolving]
  - Bone pain [Recovering/Resolving]
  - Product dose omission issue [Recovered/Resolved]
  - Gout [Not Recovered/Not Resolved]
  - Blood uric acid increased [Unknown]
  - Pain [Unknown]
  - Gait inability [Unknown]
  - Arthralgia [Unknown]
  - Hypotension [Unknown]
  - Presyncope [Unknown]
  - Asthenia [Unknown]
  - Lethargy [Unknown]
  - Laboratory test abnormal [Unknown]
  - Tumour marker increased [Unknown]
  - Inflammation [Unknown]
  - Drug ineffective [Unknown]
  - Fatigue [Recovering/Resolving]
  - Blood creatinine increased [Unknown]

NARRATIVE: CASE EVENT DATE: 20230215
